FAERS Safety Report 19270634 (Version 1)
Quarter: 2021Q2

REPORT INFORMATION
  Report Type: Spontaneous
  Country: US (occurrence: US)
  Receive Date: 20210518
  Receipt Date: 20210518
  Transmission Date: 20210717
  Serious: No
  Sender: FDA-Public Use
  Company Number: US-ORGANON-O2105USA000831

PATIENT
  Age: 17 Year
  Sex: Female

DRUGS (2)
  1. NEXPLANON [Suspect]
     Active Substance: ETONOGESTREL
     Indication: CONTRACEPTION
     Dosage: 1 IMPLANT, FOR 3 YEARS, LEFT ARM
     Route: 059
     Dates: start: 20210322
  2. MUCINEX [Suspect]
     Active Substance: GUAIFENESIN
     Dosage: UNK

REACTIONS (3)
  - Intermenstrual bleeding [Unknown]
  - Menstrual disorder [Unknown]
  - Vaginal discharge [Unknown]

NARRATIVE: CASE EVENT DATE: 20210417
